FAERS Safety Report 16055737 (Version 1)
Quarter: 2019Q1

REPORT INFORMATION
  Report Type: Spontaneous
  Country: DK (occurrence: DK)
  Receive Date: 20190311
  Receipt Date: 20190311
  Transmission Date: 20190418
  Serious: Yes (Death, Hospitalization, Other)
  Sender: FDA-Public Use
  Company Number: DK-ACCORD-111386

PATIENT
  Age: 85 Year
  Sex: Male

DRUGS (9)
  1. ROSUVASTATIN/ROSUVASTATIN CALCIUM [Concomitant]
     Dosage: 5 MG, QD
  2. DABIGATRAN/DABIGATRAN ETEXILATE [Suspect]
     Active Substance: DABIGATRAN ETEXILATE
     Indication: MYOCARDIAL ISCHAEMIA
     Dosage: 110 MG, BID
     Route: 065
  3. WARFARIN [Suspect]
     Active Substance: WARFARIN
     Indication: PRODUCT USED FOR UNKNOWN INDICATION
  4. FUROSEMIDE. [Concomitant]
     Active Substance: FUROSEMIDE
     Dosage: 80 MG, BID
  5. SPIRONOLACTONE. [Concomitant]
     Active Substance: SPIRONOLACTONE
     Dosage: 50 MG, BID
  6. CLOPIDOGREL [Suspect]
     Active Substance: CLOPIDOGREL BISULFATE
     Indication: MYOCARDIAL ISCHAEMIA
     Route: 065
  7. POTASSIUM CHLORIDE. [Concomitant]
     Active Substance: POTASSIUM CHLORIDE
     Dosage: 750 MG, BID
  8. HEPARIN [Concomitant]
     Active Substance: HEPARIN SODIUM
  9. METOPROLOL. [Concomitant]
     Active Substance: METOPROLOL
     Dosage: 50 MG, QD

REACTIONS (10)
  - Cardiac failure [Unknown]
  - Syncope [Unknown]
  - Sepsis [Fatal]
  - Aortic stenosis [Unknown]
  - Circulatory collapse [Fatal]
  - Weight decreased [Unknown]
  - Dizziness [Unknown]
  - Drug ineffective [Unknown]
  - Intracardiac thrombus [Unknown]
  - Drug resistance [Unknown]
